FAERS Safety Report 6807259-1 (Version None)
Quarter: 2010Q2

REPORT INFORMATION
  Report Type: 
  Country: None (occurrence: None)
  Receive Date: 20100629
  Receipt Date: 20080808
  Transmission Date: 20101027
  Serious: Yes (Other)
  Sender: FDA-Public Use
  Company Number: US-PFIZER INC-2008066479

PATIENT
  Sex: Male
  Weight: 102.27 kg

DRUGS (5)
  1. VIAGRA [Suspect]
     Indication: ERECTILE DYSFUNCTION
     Route: 048
     Dates: start: 20070101
  2. LISINOPRIL [Concomitant]
  3. METOPROLOL [Concomitant]
  4. WARFARIN [Concomitant]
  5. TYLENOL (CAPLET) [Concomitant]

REACTIONS (3)
  - BLOOD PRESSURE DECREASED [None]
  - DRUG INEFFECTIVE [None]
  - VISION BLURRED [None]
